FAERS Safety Report 10192498 (Version 1)
Quarter: 2014Q2

REPORT INFORMATION
  Report Type: Report from Study
  Country: US (occurrence: US)
  Receive Date: 20140523
  Receipt Date: 20140523
  Transmission Date: 20141212
  Serious: Yes (Hospitalization)
  Sender: FDA-Public Use
  Company Number: US-PFIZER INC-2014132336

PATIENT
  Age: 63 Year
  Sex: Female
  Weight: 58.96 kg

DRUGS (17)
  1. TEMSIROLIMUS [Suspect]
     Indication: NON-SMALL CELL LUNG CANCER METASTATIC
     Dosage: 25 MG, WEEKLY
     Route: 042
     Dates: start: 20140415, end: 20140415
  2. TEMSIROLIMUS [Suspect]
     Dosage: 25 MG, WEEKLY
     Route: 042
     Dates: start: 20140506, end: 20140506
  3. TARCEVA [Suspect]
     Indication: NON-SMALL CELL LUNG CANCER METASTATIC
     Dosage: 100 MG, 1X/DAY
     Route: 048
     Dates: start: 20140408, end: 20140422
  4. TARCEVA [Suspect]
     Dosage: 100 MG, 1X/DAY
     Route: 048
     Dates: start: 20140502, end: 20140512
  5. ALENDRONATE [Concomitant]
     Dosage: 70 MG, WEEKLY
     Route: 048
     Dates: start: 2011
  6. CALCIUM [Concomitant]
     Dosage: 600 MG, 2X/DAY
     Route: 048
     Dates: start: 2011
  7. CHERATUSSIN [Concomitant]
     Dosage: 1 DF (TSP), EVERY 4 HOURS AS NEEDED
     Route: 048
     Dates: start: 20140324
  8. FOLIC ACID [Concomitant]
     Dosage: 1 MG, 1X/DAY
     Route: 048
     Dates: start: 20140228
  9. OXYCODONE [Concomitant]
     Dosage: 5 MG, AS NEEDED
     Route: 048
     Dates: start: 20140228
  10. VITAMIN D [Concomitant]
     Dosage: 1 DF(TABLET), 1X/DAY
     Route: 048
     Dates: start: 201308
  11. PENTASA [Concomitant]
     Dosage: 550 MG, 3X/DAY
     Route: 048
     Dates: start: 2007
  12. PREDNISONE [Concomitant]
     Dosage: 20 MG, 1X/DAY
     Route: 048
     Dates: start: 201402
  13. LOVENOX [Concomitant]
     Dosage: 60MG/0.6ML TWICE A DAY
     Route: 058
     Dates: start: 20140327
  14. BENZONATATE [Concomitant]
     Dosage: 100 MG, THREE TIMES A DAY AS NEEDED
     Route: 048
     Dates: start: 20140328
  15. ALBUTEROL SULFATE [Concomitant]
     Dosage: 2.5MG/3ML, INHALATION AS NEEDED
     Route: 055
     Dates: start: 20140422
  16. LEVOFLOXACIN [Concomitant]
     Dosage: 750 MG, 1X/DAY
     Route: 048
     Dates: start: 20140427, end: 20140501
  17. CODEINE W/GUAIFENESIN [Concomitant]
     Dosage: 10-100MG/5ML, EVERY 4 TO 6 HOURS AS NEEDED
     Dates: start: 20140506

REACTIONS (2)
  - Muscular weakness [Unknown]
  - Pyrexia [Unknown]
